FAERS Safety Report 10042533 (Version 1)
Quarter: 2014Q1

REPORT INFORMATION
  Report Type: Spontaneous
  Country: US (occurrence: US)
  Receive Date: 20140327
  Receipt Date: 20140327
  Transmission Date: 20141002
  Serious: No
  Sender: FDA-Public Use
  Company Number: US-ASTRAZENECA-2013SE86592

PATIENT
  Age: 73 Year
  Sex: Female
  Weight: 56.7 kg

DRUGS (10)
  1. SYMBICORT [Suspect]
     Indication: ASTHMA
     Dosage: 160 MCG/4.5 MCF, 2 PUFFS, TWO TIMES A DAY
     Route: 055
     Dates: start: 2011
  2. NEXIUM [Suspect]
     Indication: GASTROOESOPHAGEAL REFLUX DISEASE
     Route: 048
     Dates: start: 1993
  3. OMEPRAZOLE [Suspect]
     Indication: GASTROOESOPHAGEAL REFLUX DISEASE
     Route: 048
  4. BENADRYL [Concomitant]
     Indication: MULTIPLE ALLERGIES
     Dosage: 1 DAILY
  5. ZYRTEC [Concomitant]
     Indication: MULTIPLE ALLERGIES
     Dates: start: 201310
  6. ALLER-TEC [Concomitant]
     Indication: MULTIPLE ALLERGIES
     Dates: end: 201310
  7. PEPCID [Concomitant]
     Indication: GASTROOESOPHAGEAL REFLUX DISEASE
  8. ALLEVE [Concomitant]
     Indication: ARTHRITIS
     Dosage: 2 BID
  9. VENTOLIN HFA ALBUTEROL [Concomitant]
     Indication: ASTHMA
     Dosage: AS REQUIRED
     Route: 055
     Dates: start: 1993
  10. LOTS OF UNSPECIFIED VITAMINS [Concomitant]

REACTIONS (7)
  - Asthma [Not Recovered/Not Resolved]
  - Malaise [Not Recovered/Not Resolved]
  - Constipation [Not Recovered/Not Resolved]
  - Cough [Not Recovered/Not Resolved]
  - Bronchitis [Unknown]
  - Dry mouth [Not Recovered/Not Resolved]
  - Drug ineffective [Not Recovered/Not Resolved]
